FAERS Safety Report 5654492 (Version 2)
Quarter: 2017Q2

REPORT INFORMATION
  Report Type: Report from Study
  Country: CA (occurrence: CA)
  Receive Date: 20041028
  Receipt Date: 20170628
  Transmission Date: 20170830
  Serious: Yes (Hospitalization)
  Sender: FDA-Public Use
  Company Number: CA-AMGEN-US096638

PATIENT
  Age: 15 Year
  Sex: Female

DRUGS (9)
  1. ENALAPRIL [Concomitant]
     Active Substance: ENALAPRIL
  2. CLONIDINE. [Concomitant]
     Active Substance: CLONIDINE
  3. OMEPRAZOLE. [Concomitant]
     Active Substance: OMEPRAZOLE
     Dosage: 20 MG, QD
  4. CALCITRIOL. [Concomitant]
     Active Substance: CALCITRIOL
     Dosage: .5 MUG, QD
  5. SOMATROPIN [Concomitant]
     Active Substance: SOMATROPIN
     Dosage: 3 MG, QD
     Route: 058
  6. FLUOXETINE HYDROCHLORIDE. [Concomitant]
     Active Substance: FLUOXETINE HYDROCHLORIDE
     Dosage: 50 MG, QD
  7. FERROUS SULFATE. [Concomitant]
     Active Substance: FERROUS SULFATE
     Dosage: 60 MG, BID
  8. CLONAZEPAM. [Concomitant]
     Active Substance: CLONAZEPAM
     Dosage: .5 MG, BID
  9. DARBEPOETIN ALFA [Suspect]
     Active Substance: DARBEPOETIN ALFA
     Indication: DIALYSIS
     Dosage: 20 MUG, QWK
     Route: 042
     Dates: start: 20030604

REACTIONS (3)
  - Pyrexia [Recovered/Resolved]
  - Hypertension [Recovered/Resolved]
  - Pain [Recovered/Resolved]

NARRATIVE: CASE EVENT DATE: 20030819
